FAERS Safety Report 15553744 (Version 1)
Quarter: 2018Q4

REPORT INFORMATION
  Report Type: Spontaneous
  Country: US (occurrence: US)
  Receive Date: 20181026
  Receipt Date: 20181026
  Transmission Date: 20190205
  Serious: Yes (Other)
  Sender: FDA-Public Use
  Company Number: US-SA-2018SA033538

PATIENT
  Age: 38 Year
  Sex: Female
  Weight: 201 kg

DRUGS (3)
  1. TAXOTERE [Suspect]
     Active Substance: DOCETAXEL
     Indication: BREAST CANCER
     Dosage: UNK UNK,QCY
     Route: 042
     Dates: start: 20131223, end: 20131223
  2. PARAPLATIN [Concomitant]
     Active Substance: CARBOPLATIN
     Route: 065
  3. TAXOTERE [Suspect]
     Active Substance: DOCETAXEL
     Dosage: UNK UNK, Q3W
     Route: 042
     Dates: start: 20140301, end: 20140301

REACTIONS (1)
  - Alopecia [Not Recovered/Not Resolved]
